FAERS Safety Report 17568648 (Version 1)
Quarter: 2020Q1

REPORT INFORMATION
  Report Type: Spontaneous
  Country: US (occurrence: US)
  Receive Date: 20200320
  Receipt Date: 20200320
  Transmission Date: 20200409
  Serious: Yes (Other)
  Sender: FDA-Public Use
  Company Number: US-BAXTER-2020BAX006357

PATIENT
  Age: 59 Year
  Sex: Female

DRUGS (3)
  1. CISPLATIN. [Suspect]
     Active Substance: CISPLATIN
     Indication: ANGIOSARCOMA
     Dosage: ON DAY 2, THIS WAS GIVEN WEEKLY FOR 3 WEEKS, EVERY 28 DAYS.; CYCLICAL
     Route: 065
  2. DOXIL [Suspect]
     Active Substance: DOXORUBICIN HYDROCHLORIDE
     Indication: ANGIOSARCOMA
     Dosage: GIVEN AS A CONTINUOUS INFUSION FOR 18 H ON DAY 1. THIS WAS GIVEN WEEKLY FOR 3 WEEKS, EVERY 28 DAY..
     Route: 065
  3. PACLITAXEL. [Suspect]
     Active Substance: PACLITAXEL
     Indication: ANGIOSARCOMA
     Dosage: OVER 3 H ON DAY 2. THIS WAS GIVEN WEEKLY FOR 3 WEEKS, EVERY 28 DAYS.;CYCLICAL
     Route: 042

REACTIONS (3)
  - Nausea [Unknown]
  - Acute kidney injury [Unknown]
  - Fatigue [Unknown]
